FAERS Safety Report 11126674 (Version 2)
Quarter: 2015Q2

REPORT INFORMATION
  Report Type: Spontaneous
  Country: US (occurrence: US)
  Receive Date: 20150520
  Receipt Date: 20150609
  Transmission Date: 20150821
  Serious: No
  Sender: FDA-Public Use
  Company Number: US-GLAXOSMITHKLINE-US2015GSK068953

PATIENT
  Age: 53 Year
  Sex: Female

DRUGS (2)
  1. VOTRIENT [Suspect]
     Active Substance: PAZOPANIB HYDROCHLORIDE
     Indication: BONE CANCER
     Dosage: 800 MG, QD
     Route: 048
     Dates: start: 20150126, end: 20150318
  2. VOTRIENT [Suspect]
     Active Substance: PAZOPANIB HYDROCHLORIDE
     Dosage: 800 MG, QD
     Route: 048
     Dates: start: 20150106, end: 20150318

REACTIONS (1)
  - Hospice care [Not Recovered/Not Resolved]

NARRATIVE: CASE EVENT DATE: 20150514
